FAERS Safety Report 25709562 (Version 2)
Quarter: 2025Q3

REPORT INFORMATION
  Report Type: Spontaneous
  Country: US (occurrence: US)
  Receive Date: 20250821
  Receipt Date: 20250829
  Transmission Date: 20251020
  Serious: Yes (Other)
  Sender: SUNOVION
  Company Number: US-SMPA-2025SPA010564

PATIENT
  Age: 77 Year
  Sex: Male

DRUGS (2)
  1. ORGOVYX [Suspect]
     Active Substance: RELUGOLIX
     Indication: Prostate cancer
     Route: 048
  2. VYNDAMAX [Concomitant]
     Active Substance: TAFAMIDIS

REACTIONS (4)
  - Cardiac amyloidosis [Not Recovered/Not Resolved]
  - Body fat disorder [Unknown]
  - Fatigue [Unknown]
  - Libido decreased [Unknown]
